FAERS Safety Report 25630683 (Version 1)
Quarter: 2025Q3

REPORT INFORMATION
  Report Type: Spontaneous
  Country: GB (occurrence: GB)
  Receive Date: 20250801
  Receipt Date: 20250801
  Transmission Date: 20251021
  Serious: Yes (Other)
  Sender: LEO PHARM
  Company Number: None

PATIENT
  Age: 39 Year
  Sex: Female

DRUGS (5)
  1. AZELAIC ACID [Suspect]
     Active Substance: AZELAIC ACID
     Indication: Chloasma
     Dosage: TWICE A DAY?15 % GEL
     Dates: start: 20250721
  2. DESOGESTREL [Concomitant]
     Active Substance: DESOGESTREL
     Indication: Adverse drug reaction
     Dates: start: 20250625
  3. SERTRALINE [Concomitant]
     Active Substance: SERTRALINE HYDROCHLORIDE
     Indication: Depression
  4. METHOTREXATE [Concomitant]
     Active Substance: METHOTREXATE
     Indication: Scleroderma
     Dates: start: 20250618
  5. FOLIC ACID [Concomitant]
     Active Substance: FOLIC ACID
     Indication: Adverse drug reaction
     Dates: start: 20250619

REACTIONS (4)
  - Product use in unapproved indication [Unknown]
  - Periorbital swelling [Not Recovered/Not Resolved]
  - Skin burning sensation [Not Recovered/Not Resolved]
  - Eye pain [Not Recovered/Not Resolved]

NARRATIVE: CASE EVENT DATE: 20250721
